FAERS Safety Report 13426704 (Version 1)
Quarter: 2017Q2

REPORT INFORMATION
  Report Type: Spontaneous
  Country: ES (occurrence: ES)
  Receive Date: 20170411
  Receipt Date: 20170411
  Transmission Date: 20170830
  Serious: Yes (Hospitalization)
  Sender: FDA-Public Use
  Company Number: ES-ROCHE-1919136

PATIENT
  Age: 45 Year
  Sex: Female

DRUGS (8)
  1. EXEMESTANE. [Concomitant]
     Active Substance: EXEMESTANE
  2. HERCEPTIN [Suspect]
     Active Substance: TRASTUZUMAB
     Indication: INVASIVE DUCTAL BREAST CARCINOMA
     Route: 058
     Dates: start: 20160119, end: 20160406
  3. HERCEPTIN [Suspect]
     Active Substance: TRASTUZUMAB
     Dosage: LAST RECEIVED DOSE ON 12/JAN/2017 (11TH DOSE)
     Route: 058
     Dates: start: 20160616, end: 20170112
  4. CYCLOPHOSPHAMIDE. [Concomitant]
     Active Substance: CYCLOPHOSPHAMIDE
     Dosage: 1/21 DAYSX 4 CYCLES
     Route: 065
     Dates: start: 20151016, end: 20151228
  5. TAMOXIFEN [Suspect]
     Active Substance: TAMOXIFEN
     Indication: INVASIVE DUCTAL BREAST CARCINOMA
     Route: 048
     Dates: start: 20160616, end: 20170217
  6. DOXORUBICIN [Concomitant]
     Active Substance: DOXORUBICIN
     Dosage: 1/21 DAYSX 4 CYCLES
     Route: 065
     Dates: start: 20151016, end: 20151228
  7. ZOLADEX [Concomitant]
     Active Substance: GOSERELIN ACETATE
  8. PACLITAXEL. [Concomitant]
     Active Substance: PACLITAXEL
     Dosage: 80 MG/M2 X 12 DOSES
     Route: 065

REACTIONS (1)
  - Retinal detachment [Unknown]

NARRATIVE: CASE EVENT DATE: 20170119
